FAERS Safety Report 9697954 (Version 3)
Quarter: 2013Q4

REPORT INFORMATION
  Report Type: Spontaneous
  Country: DE (occurrence: DE)
  Receive Date: 20131120
  Receipt Date: 20131219
  Transmission Date: 20140711
  Serious: Yes (Other)
  Sender: FDA-Public Use
  Company Number: DE-JNJFOC-20131107668

PATIENT
  Sex: Female

DRUGS (6)
  1. DUROGESIC SMAT [Suspect]
     Indication: PAIN
     Route: 062
  2. BISOPROLOL [Concomitant]
     Indication: HYPERTENSION
     Route: 048
  3. PANTOPRAZOLE [Concomitant]
     Indication: RESTLESSNESS
     Route: 048
  4. PANTOPRAZOLE [Concomitant]
     Indication: GASTROOESOPHAGEAL REFLUX DISEASE
     Route: 048
  5. DIAZEPAM [Concomitant]
     Indication: RESTLESSNESS
     Route: 048
  6. DIAZEPAM [Concomitant]
     Indication: GASTROOESOPHAGEAL REFLUX DISEASE
     Route: 048

REACTIONS (3)
  - Drug abuse [Recovered/Resolved]
  - Wrong technique in drug usage process [Unknown]
  - Intentional drug misuse [Unknown]
